FAERS Safety Report 5797493-4 (Version None)
Quarter: 2008Q2

REPORT INFORMATION
  Report Type: 
  Country: None (occurrence: None)
  Receive Date: 20080630
  Receipt Date: 20080620
  Transmission Date: 20081010
  Serious: Yes (Other)
  Sender: FDA-Public Use
  Company Number: 2008016536

PATIENT
  Age: 79 Year
  Sex: Female
  Weight: 58.0604 kg

DRUGS (3)
  1. LISTERINE WHITENING PRE-BRUSH RINSE (NO ACTIVE INGREDIENT) [Suspect]
     Dosage: 3 TEASPOONS TWICE DAILY (2 IN 1 D), ORAL
     Route: 048
     Dates: start: 20080609, end: 20080611
  2. DARVON [Concomitant]
  3. ATENOLOL [Concomitant]

REACTIONS (2)
  - ORAL PAIN [None]
  - THERMAL BURN [None]
